FAERS Safety Report 18415460 (Version 1)
Quarter: 2020Q4

REPORT INFORMATION
  Report Type: Report from Study
  Country: HN (occurrence: HN)
  Receive Date: 20201022
  Receipt Date: 20201022
  Transmission Date: 20210114
  Serious: Yes (Other)
  Sender: FDA-Public Use
  Company Number: NVSC2020HN282223

PATIENT
  Age: 81 Year
  Sex: Female

DRUGS (2)
  1. CODIOVAN [Suspect]
     Active Substance: HYDROCHLOROTHIAZIDE\VALSARTAN
     Dosage: 320/12.5 MG (STARTED 5 DAYS AGO)
     Route: 065
  2. CODIOVAN [Suspect]
     Active Substance: HYDROCHLOROTHIAZIDE\VALSARTAN
     Indication: PRODUCT USED FOR UNKNOWN INDICATION
     Dosage: 320/25 MG (STARTED 3 YEARS AGO AND STOPPED 5 DAYS AGO)
     Route: 065

REACTIONS (6)
  - Rib fracture [Unknown]
  - Malaise [Unknown]
  - Gait inability [Unknown]
  - Blood glucose decreased [Unknown]
  - Blood pressure decreased [Unknown]
  - Pain in extremity [Unknown]
